FAERS Safety Report 9782409 (Version 2)
Quarter: 2014Q1

REPORT INFORMATION
  Report Type: Spontaneous
  Country: FR (occurrence: FR)
  Receive Date: 20131226
  Receipt Date: 20140326
  Transmission Date: 20141002
  Serious: Yes (Other)
  Sender: FDA-Public Use
  Company Number: PHHY2013FR149271

PATIENT
  Age: 61 Year
  Sex: Male

DRUGS (2)
  1. TEGRETOL [Suspect]
     Indication: PAIN
     Dosage: 200 MG, TID
     Route: 048
  2. TEGRETOL [Suspect]
     Indication: PAIN
     Dosage: 200 MG, QD
     Route: 048

REACTIONS (11)
  - Herpes virus infection [Unknown]
  - Urticaria [Unknown]
  - Blister [Unknown]
  - Pruritus [Unknown]
  - Erythema multiforme [Unknown]
  - Musculoskeletal chest pain [Unknown]
  - Swelling [Unknown]
  - Irritability [Unknown]
  - Feeding disorder [Unknown]
  - Blood pressure increased [Unknown]
  - Arthralgia [Unknown]
